FAERS Safety Report 4386157-X (Version None)
Quarter: 2004Q2

REPORT INFORMATION
  Report Type: 
  Country: None (occurrence: None)
  Receive Date: 20040628
  Receipt Date: 20040628
  Transmission Date: 20050107
  Serious: Yes (Hospitalization, Other)
  Sender: FDA-Public Use
  Company Number: None

PATIENT
  Age: 22 Year
  Sex: Female
  Weight: 58.9676 kg

DRUGS (1)
  1. TRI-NESSA 28'S WATSON [Suspect]
     Indication: MENSTRUATION IRREGULAR
     Dosage: 1 TABLET ONCE A DAY ORAL
     Route: 048
     Dates: start: 20040407, end: 20040616

REACTIONS (15)
  - ABDOMINAL PAIN UPPER [None]
  - ABNORMAL BEHAVIOUR [None]
  - ANOREXIA [None]
  - ANXIETY [None]
  - BREAST SWELLING [None]
  - BREAST TENDERNESS [None]
  - CRYING [None]
  - DIARRHOEA [None]
  - DIZZINESS [None]
  - HYPERHIDROSIS [None]
  - HYPOTRICHOSIS [None]
  - INSOMNIA [None]
  - MOOD SWINGS [None]
  - NAUSEA [None]
  - TREMOR [None]
